FAERS Safety Report 23406094 (Version 1)
Quarter: 2024Q1

REPORT INFORMATION
  Report Type: Spontaneous
  Country: GB (occurrence: GB)
  Receive Date: 20240116
  Receipt Date: 20240116
  Transmission Date: 20240410
  Serious: Yes (Other)
  Sender: FDA-Public Use
  Company Number: GB-MYLANLABS-2024M1004648

PATIENT

DRUGS (1)
  1. LYRICA [Suspect]
     Active Substance: PREGABALIN
     Indication: Fibromyalgia
     Dosage: UNK
     Route: 065

REACTIONS (5)
  - Seizure [Unknown]
  - Withdrawal syndrome [Unknown]
  - Chills [Unknown]
  - Tinnitus [Unknown]
  - Drug ineffective [Unknown]
